FAERS Safety Report 9553733 (Version 4)
Quarter: 2014Q2

REPORT INFORMATION
  Report Type: Spontaneous
  Country: CA (occurrence: CA)
  Receive Date: 20130925
  Receipt Date: 20140401
  Transmission Date: 20141212
  Serious: Yes (Death, Life-Threatening, Other)
  Sender: FDA-Public Use
  Company Number: CA-JNJFOC-20130913189

PATIENT
  Age: 19 Year
  Sex: Female

DRUGS (12)
  1. RISPERIDONE [Suspect]
     Indication: PSYCHOTIC DISORDER
     Route: 065
  2. RISPERIDONE [Suspect]
     Indication: PSYCHOTIC DISORDER
     Route: 065
  3. RISPERIDONE [Suspect]
     Indication: PSYCHOTIC DISORDER
     Route: 065
  4. RISPERIDONE [Suspect]
     Indication: PSYCHOTIC DISORDER
     Dosage: 1 MG MORNING AND 2 MG BEFORE BEDTIME
     Route: 065
  5. DIPHENHYDRAMINE [Suspect]
     Indication: PRODUCT USED FOR UNKNOWN INDICATION
     Route: 065
  6. LOXAPINE [Suspect]
     Indication: PRODUCT USED FOR UNKNOWN INDICATION
     Route: 065
  7. NORTRIPTYLINE [Suspect]
     Indication: PSYCHOTIC DISORDER
     Route: 065
  8. NORTRIPTYLINE [Suspect]
     Indication: MAJOR DEPRESSION
     Route: 065
  9. OLANZAPINE [Suspect]
     Indication: PSYCHOTIC DISORDER
     Route: 065
  10. OLANZAPINE [Suspect]
     Indication: PSYCHOTIC DISORDER
     Route: 065
  11. VENLAFAXINE XR [Suspect]
     Indication: MAJOR DEPRESSION
     Route: 065
  12. VENLAFAXINE XR [Suspect]
     Indication: MAJOR DEPRESSION
     Route: 065

REACTIONS (17)
  - Respiratory arrest [Fatal]
  - Pulmonary embolism [Fatal]
  - Loss of consciousness [Unknown]
  - Pulse absent [Unknown]
  - Suicidal ideation [Unknown]
  - Anhedonia [Unknown]
  - Eating disorder [Unknown]
  - Mydriasis [Unknown]
  - Overdose [Unknown]
  - Amenorrhoea [Unknown]
  - Depression [Unknown]
  - Hyperprolactinaemia [Unknown]
  - Hyperprolactinaemia [Unknown]
  - Hypotension [Unknown]
  - Hypotension [Unknown]
  - Weight increased [Unknown]
  - Respiratory rate decreased [Unknown]
